FAERS Safety Report 9845163 (Version 1)
Quarter: 2014Q1

REPORT INFORMATION
  Report Type: Spontaneous
  Country: AU (occurrence: None)
  Receive Date: 20140122
  Receipt Date: 20140122
  Transmission Date: 20141002
  Serious: Yes (Life-Threatening, Hospitalization)
  Sender: FDA-Public Use
  Company Number: ABR_01390_2014

PATIENT
  Age: 40 Year
  Sex: Female

DRUGS (4)
  1. AMPHETAMINE [Suspect]
     Indication: PRODUCT USED FOR UNKNOWN INDICATION
     Route: 042
  2. NICOTINE [Suspect]
     Indication: PRODUCT USED FOR UNKNOWN INDICATION
     Dosage: 20-30 CIGGARETTES PER DAY
  3. ANTI-DEPRESSANTS (UNKNOWN) [Concomitant]
  4. MOOD STABILIZERS [Concomitant]

REACTIONS (13)
  - Vaginal haemorrhage [None]
  - Abdominal pain [None]
  - Nausea [None]
  - Vomiting [None]
  - Gastroenteritis [None]
  - Anaemia [None]
  - Skin ulcer [None]
  - Placenta praevia [None]
  - Heart rate increased [None]
  - Haemorrhage [None]
  - Caesarean section [None]
  - Premature separation of placenta [None]
  - Foetal hypokinesia [None]
